FAERS Safety Report 7915053-3 (Version None)
Quarter: 2011Q4

REPORT INFORMATION
  Report Type: 
  Country: None (occurrence: None)
  Receive Date: 20111115
  Receipt Date: 20111108
  Transmission Date: 20120403
  Serious: Yes (Life-Threatening, Hospitalization, Other)
  Sender: FDA-Public Use
  Company Number: US-BRISTOL-MYERS SQUIBB COMPANY-16082232

PATIENT
  Age: 2 Year
  Sex: Male
  Weight: 15 kg

DRUGS (1)
  1. STADOL [Suspect]
     Dosage: ABOUT 20MINS
     Route: 030
     Dates: start: 20090708

REACTIONS (6)
  - HYPERTONIA [None]
  - SOMNOLENCE [None]
  - CYANOSIS [None]
  - MICROENCEPHALY [None]
  - RESPIRATORY DISTRESS [None]
  - WRONG DRUG ADMINISTERED [None]
